FAERS Safety Report 7471959-3 (Version None)
Quarter: 2011Q2

REPORT INFORMATION
  Report Type: 
  Country: None (occurrence: None)
  Receive Date: 20110511
  Receipt Date: 20100820
  Transmission Date: 20111010
  Serious: No
  Sender: FDA-Public Use
  Company Number: A0876983A

PATIENT
  Age: 65 Year
  Sex: Female

DRUGS (3)
  1. PROCRIT [Concomitant]
  2. TYKERB [Suspect]
     Indication: BREAST CANCER
     Dosage: 5CAP PER DAY
     Route: 048
     Dates: start: 20100715
  3. ALIMTA [Concomitant]

REACTIONS (3)
  - DYSGEUSIA [None]
  - ILL-DEFINED DISORDER [None]
  - NAUSEA [None]
